FAERS Safety Report 10532537 (Version 1)
Quarter: 2014Q4

REPORT INFORMATION
  Report Type: Spontaneous
  Country: US (occurrence: US)
  Receive Date: 20141021
  Receipt Date: 20141021
  Transmission Date: 20150529
  Serious: No
  Sender: FDA-Public Use
  Company Number: US-009507513-1410USA010429

PATIENT
  Age: 45 Year
  Sex: Female

DRUGS (6)
  1. DECADRON [Concomitant]
     Active Substance: DEXAMETHASONE
  2. ZOFRAN [Concomitant]
     Active Substance: ONDANSETRON HYDROCHLORIDE
  3. FAMOTIDINE. [Suspect]
     Active Substance: FAMOTIDINE
     Indication: PREMEDICATION
     Dosage: 20 ML INJECTION VIA IV/ 2 MINUTE PUSH
     Route: 042
     Dates: start: 20141013
  4. ATIVAN [Concomitant]
     Active Substance: LORAZEPAM
  5. ABRAXANE [Concomitant]
     Active Substance: PACLITAXEL
  6. EMEND [Concomitant]
     Active Substance: APREPITANT

REACTIONS (5)
  - Malaise [Unknown]
  - Feeling abnormal [Unknown]
  - Dizziness [Unknown]
  - Blood potassium decreased [Unknown]
  - Confusional state [Unknown]

NARRATIVE: CASE EVENT DATE: 20141013
